FAERS Safety Report 5750360-4 (Version None)
Quarter: 2008Q2

REPORT INFORMATION
  Report Type: 
  Country: None (occurrence: None)
  Receive Date: 20080523
  Receipt Date: 20080523
  Transmission Date: 20081010
  Serious: Yes (Other)
  Sender: FDA-Public Use
  Company Number: None

PATIENT
  Age: 22 Year
  Sex: Male
  Weight: 72.5755 kg

DRUGS (2)
  1. LEVAQUIN [Suspect]
     Indication: PROSTATE INFECTION
     Dosage: 1 PILL DAILY PO
     Route: 048
     Dates: start: 20080215, end: 20080315
  2. LEVAQUIN [Suspect]
     Indication: PROSTATE INFECTION
     Dosage: 1 PILL DAILY PO
     Route: 048
     Dates: start: 20080420, end: 20080505

REACTIONS (18)
  - ABDOMINAL PAIN UPPER [None]
  - ARTHRALGIA [None]
  - ATTENTION DEFICIT/HYPERACTIVITY DISORDER [None]
  - DIARRHOEA [None]
  - DIZZINESS [None]
  - FATIGUE [None]
  - GAIT DISTURBANCE [None]
  - HYPERAESTHESIA [None]
  - IMPAIRED DRIVING ABILITY [None]
  - INFECTION [None]
  - MUSCULAR WEAKNESS [None]
  - MYALGIA [None]
  - NAUSEA [None]
  - NERVOUS SYSTEM DISORDER [None]
  - PHARMACEUTICAL PRODUCT COMPLAINT [None]
  - RASH [None]
  - SLEEP DISORDER [None]
  - TREMOR [None]
